FAERS Safety Report 6786144-8 (Version None)
Quarter: 2010Q2

REPORT INFORMATION
  Report Type: 
  Country: None (occurrence: None)
  Receive Date: 20100621
  Receipt Date: 20100621
  Transmission Date: 20101027
  Serious: Yes (Other)
  Sender: FDA-Public Use
  Company Number: None

PATIENT
  Sex: Female

DRUGS (1)
  1. CIMZIA [Suspect]
     Indication: RHEUMATOID ARTHRITIS
     Dosage: 400MG EVERY 4 WEEKS SQ
     Route: 058
     Dates: start: 20100427, end: 20100618

REACTIONS (1)
  - NEUROPATHY PERIPHERAL [None]
